FAERS Safety Report 18709532 (Version 1)
Quarter: 2021Q1

REPORT INFORMATION
  Report Type: Spontaneous
  Country: CA (occurrence: CA)
  Receive Date: 20210106
  Receipt Date: 20210106
  Transmission Date: 20210419
  Serious: Yes (Life-Threatening, Hospitalization, Other)
  Sender: FDA-Public Use
  Company Number: CA-PFIZER INC-2021007455

PATIENT
  Age: 4 Year
  Sex: Male
  Weight: 19 kg

DRUGS (10)
  1. FUROSEMIDE. [Concomitant]
     Active Substance: FUROSEMIDE
  2. ONCASPAR [Concomitant]
     Active Substance: PEGASPARGASE
  3. CYTARABINE INJECTION [Concomitant]
     Active Substance: CYTARABINE
  4. IMATINIB. [Concomitant]
     Active Substance: IMATINIB MESYLATE
  5. OMEPRAZOLE. [Concomitant]
     Active Substance: OMEPRAZOLE
  6. POLYETHYLENE GLYCOL [MACROGOL] [Concomitant]
     Active Substance: POLYETHYLENE GLYCOLS
  7. METHOTREXATE. [Concomitant]
     Active Substance: METHOTREXATE
  8. CASPOFUNGIN [Concomitant]
     Active Substance: CASPOFUNGIN
  9. METHOTREXATE SODIUM. [Suspect]
     Active Substance: METHOTREXATE SODIUM
     Indication: ACUTE LYMPHOCYTIC LEUKAEMIA RECURRENT
     Dosage: 750 MG, EVERY 36 HOURS
     Route: 042
  10. HYDROCORTISONE. [Concomitant]
     Active Substance: HYDROCORTISONE

REACTIONS (2)
  - SARS-CoV-2 test negative [Unknown]
  - Mucosal inflammation [Unknown]
